FAERS Safety Report 19082196 (Version 1)
Quarter: 2021Q2

REPORT INFORMATION
  Report Type: Spontaneous
  Country: US (occurrence: US)
  Receive Date: 20210401
  Receipt Date: 20210401
  Transmission Date: 20210717
  Serious: Yes (Hospitalization)
  Sender: FDA-Public Use
  Company Number: US-DRREDDYS-USA/USA/21/0133739

PATIENT
  Age: 73 Year
  Sex: Male

DRUGS (3)
  1. BLINATUMOMAB [Suspect]
     Active Substance: BLINATUMOMAB
     Indication: ACUTE LYMPHOCYTIC LEUKAEMIA
  2. INOTUZUMAB [Suspect]
     Active Substance: INOTUZUMAB OZOGAMICIN
     Indication: ACUTE LYMPHOCYTIC LEUKAEMIA
  3. DECITABINE. [Suspect]
     Active Substance: DECITABINE
     Indication: ACUTE LYMPHOCYTIC LEUKAEMIA

REACTIONS (1)
  - COVID-19 [Unknown]
